FAERS Safety Report 11689459 (Version 1)
Quarter: 2015Q4

REPORT INFORMATION
  Report Type: Spontaneous
  Country: FI (occurrence: FI)
  Receive Date: 20151102
  Receipt Date: 20151102
  Transmission Date: 20160304
  Serious: Yes (Other)
  Sender: FDA-Public Use
  Company Number: FI-TEVA-554751ISR

PATIENT
  Age: 45 Year
  Sex: Female

DRUGS (5)
  1. LETROZOL RATIOPHARM 2,5 MG [Suspect]
     Active Substance: LETROZOLE
     Route: 048
     Dates: start: 201412
  2. PALBOCICLIB, PFIZER [Suspect]
     Active Substance: PALBOCICLIB
     Indication: BREAST CANCER METASTATIC
     Dosage: 125 MG FOR 3 WEEKS
     Dates: start: 201312
  3. MESALAZINE [Concomitant]
     Active Substance: MESALAMINE
     Indication: COLITIS ULCERATIVE
     Dosage: 3200 MILLIGRAM DAILY;
  4. PALBOCICLIB, PFIZER [Suspect]
     Active Substance: PALBOCICLIB
     Dosage: AFTER NEUTROPENIA, DOSE 100 MG 3 WEEKS, THEN WEEK PAUSE THEN 75 MG ONCE DAILY
  5. PALBOCICLIB, PFIZER [Suspect]
     Active Substance: PALBOCICLIB
     Dosage: 75 MILLIGRAM DAILY;

REACTIONS (6)
  - Colitis ulcerative [Recovered/Resolved]
  - Portal vein thrombosis [Recovered/Resolved]
  - Neutropenia [None]
  - Hypoaesthesia [Recovered/Resolved]
  - Hypoaesthesia [Recovered/Resolved]
  - Adhesion [None]

NARRATIVE: CASE EVENT DATE: 201412
